FAERS Safety Report 20332708 (Version 1)
Quarter: 2022Q1

REPORT INFORMATION
  Report Type: Report from Study
  Country: CA (occurrence: CA)
  Receive Date: 20220113
  Receipt Date: 20220113
  Transmission Date: 20220423
  Serious: Yes (Other)
  Sender: FDA-Public Use
  Company Number: CA-JNJFOC-20210450680

PATIENT
  Age: 51 Year
  Sex: Male
  Weight: 55.9 kg

DRUGS (4)
  1. REMICADE [Suspect]
     Active Substance: INFLIXIMAB
     Indication: Crohn^s disease
     Route: 042
     Dates: start: 20130917
  2. REMICADE [Suspect]
     Active Substance: INFLIXIMAB
     Indication: Ankylosing spondylitis
     Route: 042
     Dates: start: 20210506
  3. REMICADE [Suspect]
     Active Substance: INFLIXIMAB
     Route: 042
  4. PANTOPRAZOLE SODIUM [Concomitant]
     Active Substance: PANTOPRAZOLE SODIUM
     Indication: Product used for unknown indication
     Route: 065

REACTIONS (14)
  - Oesophageal stenosis [Recovered/Resolved]
  - Choking [Recovered/Resolved]
  - Nasal oedema [Unknown]
  - Dysphagia [Unknown]
  - Nasal discomfort [Unknown]
  - Vitamin D decreased [Unknown]
  - Vitamin B complex deficiency [Unknown]
  - Tongue disorder [Not Recovered/Not Resolved]
  - Pharyngeal disorder [Unknown]
  - Burning sensation [Unknown]
  - Eye pain [Recovering/Resolving]
  - Ocular hyperaemia [Recovering/Resolving]
  - Oral candidiasis [Unknown]
  - Dyspepsia [Unknown]

NARRATIVE: CASE EVENT DATE: 20210601
